FAERS Safety Report 21850582 (Version 1)
Quarter: 2023Q1

REPORT INFORMATION
  Report Type: Report from Study
  Country: US (occurrence: US)
  Receive Date: 20230111
  Receipt Date: 20230111
  Transmission Date: 20230418
  Serious: Yes (Life-Threatening, Hospitalization)
  Sender: FDA-Public Use
  Company Number: US-JNJFOC-20211048560

PATIENT
  Age: 65 Year
  Sex: Male
  Weight: 82.2 kg

DRUGS (18)
  1. AMIVANTAMAB [Suspect]
     Active Substance: AMIVANTAMAB
     Indication: Non-small cell lung cancer
     Dosage: 2100 EVERY WEEK/EVERY TWO WEEKS
     Route: 042
     Dates: start: 20210713, end: 20211014
  2. PEMETREXED [Suspect]
     Active Substance: PEMETREXED
     Indication: Non-small cell lung cancer metastatic
     Dosage: 500
     Route: 042
     Dates: start: 20210713, end: 20211014
  3. CARBOPLATIN [Suspect]
     Active Substance: CARBOPLATIN
     Indication: Non-small cell lung cancer metastatic
     Dosage: 716
     Route: 042
     Dates: start: 20210713, end: 20210923
  4. OSIMERTINIB [Concomitant]
     Active Substance: OSIMERTINIB
     Indication: Non-small cell lung cancer metastatic
     Dosage: TO PRESENT
     Dates: start: 20200719
  5. LUMIGAN [Concomitant]
     Active Substance: BIMATOPROST
     Indication: Visual impairment
     Dates: start: 20210615
  6. ARTIFICIAL TEARS [HYPROMELLOSE] [Concomitant]
     Dates: start: 20210615
  7. CLONAZEPAM [Concomitant]
     Active Substance: CLONAZEPAM
     Indication: Insomnia
  8. FINASTERIDE [Concomitant]
     Active Substance: FINASTERIDE
     Indication: Benign prostatic hyperplasia
     Dates: start: 20210713
  9. APIXABAN [Concomitant]
     Active Substance: APIXABAN
     Indication: Pulmonary embolism
     Dates: start: 20210811
  10. CLINDAMYCIN [Concomitant]
     Active Substance: CLINDAMYCIN
     Indication: Dermatitis acneiform
     Route: 061
     Dates: start: 20210727
  11. FOLIC ACID [Concomitant]
     Active Substance: FOLIC ACID
     Indication: Prophylaxis
     Dates: start: 20210617
  12. METOPROLOL [Concomitant]
     Active Substance: METOPROLOL
     Indication: Tachycardia
     Dates: start: 20210805
  13. METOPROLOL [Concomitant]
     Active Substance: METOPROLOL
     Indication: Hypertension
  14. ONDANSETRON [Concomitant]
     Active Substance: ONDANSETRON
     Indication: Nausea
     Dates: start: 20210617
  15. ROSUVASTATIN [Concomitant]
     Active Substance: ROSUVASTATIN
     Indication: Hyperlipidaemia
     Dates: start: 20210805
  16. VALSARTAN [Concomitant]
     Active Substance: VALSARTAN
     Indication: Hypertension
     Dates: start: 20210805
  17. ZINC OXIDE [Concomitant]
     Active Substance: ZINC OXIDE
     Indication: Skin irritation
     Dosage: TRIPLE PASTE
     Dates: start: 20210909
  18. ZOMETA [Concomitant]
     Active Substance: ZOLEDRONIC ACID
     Indication: Metastases to bone
     Dosage: LAST DOSE GIVEN 02-JUN-2021, NEXT DUE ON 28-JUN-2021
     Dates: start: 20201214

REACTIONS (1)
  - Thrombocytopenia [Recovering/Resolving]

NARRATIVE: CASE EVENT DATE: 20211021
